FAERS Safety Report 13672856 (Version 2)
Quarter: 2017Q2

REPORT INFORMATION
  Report Type: Spontaneous
  Country: US (occurrence: US)
  Receive Date: 20170621
  Receipt Date: 20170621
  Transmission Date: 20170830
  Serious: Yes (Other)
  Sender: FDA-Public Use
  Company Number: US-CELGENEUS-USA-20170603736

PATIENT
  Sex: Female

DRUGS (1)
  1. OTEZLA [Suspect]
     Active Substance: APREMILAST
     Indication: PSORIASIS
     Dosage: 30 MILLIGRAM
     Route: 048
     Dates: start: 201701, end: 201704

REACTIONS (5)
  - Diarrhoea [Unknown]
  - Defaecation urgency [Unknown]
  - Psoriasis [Unknown]
  - Joint swelling [Unknown]
  - Osteoporotic fracture [Unknown]
